FAERS Safety Report 10144978 (Version 1)
Quarter: 2014Q2

REPORT INFORMATION
  Report Type: Spontaneous
  Country: US (occurrence: US)
  Receive Date: 20140501
  Receipt Date: 20140501
  Transmission Date: 20141212
  Serious: No
  Sender: FDA-Public Use
  Company Number: US-009507513-1404USA013779

PATIENT
  Sex: 0

DRUGS (1)
  1. DULERA [Suspect]
     Dosage: STRENGTH-200MCG/5MCG 1STANDARD DOSE OF 13,FREQUENCY-2 PUFFS TWICE A DAY.
     Dates: start: 20130814

REACTIONS (3)
  - Drug dose omission [Unknown]
  - Product quality issue [Unknown]
  - No adverse event [Unknown]
